FAERS Safety Report 24174323 (Version 2)
Quarter: 2024Q3

REPORT INFORMATION
  Report Type: Spontaneous
  Country: US (occurrence: US)
  Receive Date: 20240805
  Receipt Date: 20240910
  Transmission Date: 20241017
  Serious: Yes (Hospitalization)
  Sender: FRESENIUS KABI
  Company Number: US-FreseniusKabi-FK202411945

PATIENT
  Age: 35 Year
  Sex: Female
  Weight: 120.3 kg

DRUGS (9)
  1. VINBLASTINE [Suspect]
     Active Substance: VINBLASTINE
     Indication: Hodgkin^s disease
     Dosage: DAY 1 AND 15, Q28 DAYS?WILL RECEIVE 3 CYCLES OF AVD?ROUTE OF ADMINISTRATION: INTRAVENOUS (NOT OTHERW
     Dates: start: 20190225, end: 20190313
  2. BRENTUXIMAB VEDOTIN [Suspect]
     Active Substance: BRENTUXIMAB VEDOTIN
     Indication: Hodgkin^s disease
     Dosage: DAY 1 AND 15, Q28 DAYS?1.2 MG/KG EVERY 2 WEEKS X 6 DOSES?ROUTE OF ADMINISTRATION: INTRAVENOUS (NOT O
     Dates: start: 20190225, end: 20190313
  3. DOXORUBICIN HYDROCHLORIDE [Suspect]
     Active Substance: DOXORUBICIN HYDROCHLORIDE
     Indication: Hodgkin^s disease
     Dosage: DAY 1 AND 15, Q28 DAYS?WILL RECEIVE 3 CYCLES OF AVD?ROUTE OF ADMINISTRATION: INTRAVENOUS (NOT OTHERW
     Dates: start: 20190225, end: 20190313
  4. DACARBAZINE [Suspect]
     Active Substance: DACARBAZINE
     Indication: Hodgkin^s disease
     Dosage: DAY 1 AND 15, Q28 DAYS?WILL RECEIVE 3 CYCLES OF AVD?ROUTE OF ADMINISTRATION: INTRAVENOUS (NOT OTHERW
     Dates: start: 20190225, end: 20190313
  5. LIDOCAINE AND PRILOCAINE [Concomitant]
     Active Substance: LIDOCAINE\PRILOCAINE
     Indication: Pain prophylaxis
     Route: 061
     Dates: start: 20190225
  6. SENNA LEAF [Concomitant]
     Active Substance: SENNA LEAF
     Indication: Constipation
     Route: 048
  7. PROCHLORPERAZINE [Concomitant]
     Active Substance: PROCHLORPERAZINE
     Indication: Product used for unknown indication
     Route: 048
  8. ONDANSETRON [Concomitant]
     Active Substance: ONDANSETRON
     Indication: Product used for unknown indication
     Route: 048
  9. FAMOTIDINE [Concomitant]
     Active Substance: FAMOTIDINE
     Indication: Product used for unknown indication
     Route: 048

REACTIONS (4)
  - Abdominal pain [Recovering/Resolving]
  - Nausea [Recovering/Resolving]
  - Constipation [Recovering/Resolving]
  - Vomiting [Recovering/Resolving]

NARRATIVE: CASE EVENT DATE: 20190321
